FAERS Safety Report 22105559 (Version 1)
Quarter: 2023Q1

REPORT INFORMATION
  Report Type: Spontaneous
  Country: US (occurrence: US)
  Receive Date: 20230317
  Receipt Date: 20230317
  Transmission Date: 20230418
  Serious: No
  Sender: FDA-Public Use
  Company Number: US-BIOGEN-2020BI00840481

PATIENT
  Sex: Female

DRUGS (2)
  1. TECFIDERA [Suspect]
     Active Substance: DIMETHYL FUMARATE
     Indication: Multiple sclerosis
     Route: 050
     Dates: start: 20171226
  2. XIIDRA [Concomitant]
     Active Substance: LIFITEGRAST
     Route: 050

REACTIONS (3)
  - Balance disorder [Not Recovered/Not Resolved]
  - Immune system disorder [Unknown]
  - Herpes zoster [Unknown]
